FAERS Safety Report 8568235 (Version 5)
Quarter: 2013Q1

REPORT INFORMATION
  Report Type: Spontaneous
  Country: AR (occurrence: AR)
  Receive Date: 20120518
  Receipt Date: 20130322
  Transmission Date: 20140127
  Serious: Yes (Hospitalization, Other)
  Sender: FDA-Public Use
  Company Number: PHHY2012AR004530

PATIENT
  Age: 67 Year
  Sex: Female

DRUGS (1)
  1. DIOVAN [Suspect]
     Indication: HYPERTENSION
     Dosage: 80 MG, DAILY
     Route: 048

REACTIONS (13)
  - Osteoarthritis [Recovered/Resolved]
  - Bronchospasm [Recovering/Resolving]
  - Kyphoscoliosis [Not Recovered/Not Resolved]
  - Spinal fracture [Not Recovered/Not Resolved]
  - Blood pressure systolic increased [Recovered/Resolved]
  - Fall [Not Recovered/Not Resolved]
  - Dysphonia [Recovering/Resolving]
  - Influenza [Unknown]
  - Malaise [Unknown]
  - Spinal column injury [Unknown]
  - Spinal pain [Unknown]
  - Limb discomfort [Not Recovered/Not Resolved]
  - Abdominal discomfort [Unknown]
